FAERS Safety Report 9185059 (Version 1)
Quarter: 2012Q4

REPORT INFORMATION
  Report Type: 
  Country: AR (occurrence: AR)
  Receive Date: 20121101
  Receipt Date: 20121101
  Transmission Date: 20130627
  Serious: Yes (Other)
  Sender: FDA-Public Use
  Company Number: AR-ROCHE-1151090

PATIENT
  Age: 57 Year
  Sex: Male

DRUGS (5)
  1. MYCOPHENOLATE MOFETIL [Suspect]
     Indication: PROPHYLAXIS AGAINST TRANSPLANT REJECTION
     Route: 065
  2. FENOFIBRATE [Interacting]
     Indication: BLOOD TRIGLYCERIDES INCREASED
     Route: 065
  3. MEPREDNISONE [Concomitant]
     Route: 065
  4. LOSARTAN [Concomitant]
     Indication: HYPERTENSION
     Route: 065
  5. EZETIMIBE/SIMVASTATIN [Concomitant]
     Dosage: with ezetimibe 10mg /simvastatin 20mg for four years
     Route: 065

REACTIONS (2)
  - Febrile neutropenia [Unknown]
  - Drug interaction [Unknown]
